FAERS Safety Report 9003707 (Version 1)
Quarter: 2013Q1

REPORT INFORMATION
  Report Type: Spontaneous
  Country: US (occurrence: US)
  Receive Date: 20130108
  Receipt Date: 20130108
  Transmission Date: 20140127
  Serious: No
  Sender: FDA-Public Use
  Company Number: US-GLAXOSMITHKLINE-A0964029A

PATIENT
  Sex: Female

DRUGS (6)
  1. LOVAZA [Suspect]
     Indication: BLOOD TRIGLYCERIDES INCREASED
     Dosage: 2CAP TWICE PER DAY
     Route: 048
     Dates: start: 2009, end: 201111
  2. SYNTHROID [Concomitant]
  3. JANUMET [Concomitant]
  4. NEXIUM [Concomitant]
  5. ALTACE [Concomitant]
  6. LEXAPRO [Concomitant]

REACTIONS (2)
  - Diarrhoea [Recovering/Resolving]
  - Flatulence [Unknown]
